FAERS Safety Report 4667460-2 (Version None)
Quarter: 2005Q2

REPORT INFORMATION
  Report Type: 
  Country: None (occurrence: None)
  Receive Date: 20050519
  Receipt Date: 20050519
  Transmission Date: 20051028
  Serious: Yes (Hospitalization)
  Sender: FDA-Public Use
  Company Number: None

PATIENT
  Age: 51 Year
  Sex: Male
  Weight: 98.8842 kg

DRUGS (1)
  1. LISINOPRIL [Suspect]
     Indication: HYPERTENSION
     Dosage: 40MG   QD   ORAL
     Route: 048
     Dates: start: 20050324, end: 20050516

REACTIONS (5)
  - ASTHENIA [None]
  - COUGH [None]
  - HYPERKALAEMIA [None]
  - RENAL FAILURE ACUTE [None]
  - VOMITING [None]
